FAERS Safety Report 24971264 (Version 1)
Quarter: 2025Q1

REPORT INFORMATION
  Report Type: Spontaneous
  Country: US (occurrence: None)
  Receive Date: 20250214
  Receipt Date: 20250214
  Transmission Date: 20250408
  Serious: Yes (Death)
  Sender: FDA-CTU
  Company Number: None

PATIENT
  Sex: Female

DRUGS (11)
  1. CABENUVA [Suspect]
     Active Substance: CABOTEGRAVIR\RILPIVIRINE
     Indication: HIV infection
     Route: 058
  2. BIKTARVY [Concomitant]
     Active Substance: BICTEGRAVIR SODIUM\EMTRICITABINE\TENOFOVIR ALAFENAMIDE FUMARATE
  3. CABERGOLINE TAB 0.5MG [Concomitant]
  4. ELDERBERRY CAP 500MG [Concomitant]
  5. ELIOUIS TAB 5MG [Concomitant]
  6. ESTRADIOL TAB 10MCG [Concomitant]
  7. FIBER CHOICE CHW 1.5GM [Concomitant]
  8. HAIR SKIN TAB NAILS [Concomitant]
  9. LOMOTIL TAB 2.5MG [Concomitant]
  10. MULTIVITAMIN CAP DAILY [Concomitant]
  11. POTASSIUM TAB 99MG [Concomitant]

REACTIONS (1)
  - Death [None]
